FAERS Safety Report 16585042 (Version 1)
Quarter: 2019Q3

REPORT INFORMATION
  Report Type: Spontaneous
  Country: US (occurrence: US)
  Receive Date: 20190604
  Receipt Date: 20190604
  Transmission Date: 20191004
  Serious: No
  Sender: FDA-Public Use
  Company Number: None

PATIENT
  Age: 82 Year
  Sex: Male

DRUGS (1)
  1. COLGATE TOTAL ADVANCED WHITENING [Suspect]
     Active Substance: SODIUM FLUORIDE\TRICLOSAN
     Route: 048
     Dates: start: 201809, end: 20190604

REACTIONS (2)
  - Therapeutic product effect decreased [None]
  - Drug ineffective [None]

NARRATIVE: CASE EVENT DATE: 20190512
